FAERS Safety Report 4828053-7 (Version None)
Quarter: 2005Q4

REPORT INFORMATION
  Report Type: 
  Country: None (occurrence: None)
  Receive Date: 20051115
  Receipt Date: 20051107
  Transmission Date: 20060501
  Serious: Yes (Hospitalization)
  Sender: FDA-Public Use
  Company Number: 2005AP05863

PATIENT
  Age: 79 Year
  Sex: Male

DRUGS (2)
  1. IRESSA [Suspect]
     Indication: LUNG NEOPLASM MALIGNANT
     Route: 048
     Dates: start: 20050705, end: 20051004
  2. IRESSA [Suspect]
     Route: 048
     Dates: start: 20051009

REACTIONS (1)
  - RENAL IMPAIRMENT [None]
